FAERS Safety Report 20578742 (Version 2)
Quarter: 2023Q1

REPORT INFORMATION
  Report Type: Spontaneous
  Country: BR (occurrence: BR)
  Receive Date: 20220310
  Receipt Date: 20230316
  Transmission Date: 20230417
  Serious: Yes (Other)
  Sender: FDA-Public Use
  Company Number: BR-ALLERGAN-2206173US

PATIENT
  Sex: Female

DRUGS (1)
  1. CARBOXYMETHYLCELLULOSE SODIUM\GLYCERIN [Suspect]
     Active Substance: CARBOXYMETHYLCELLULOSE SODIUM\GLYCERIN
     Indication: Dry eye
     Dosage: 2 DROPS ON SUNDAY AND 1 DROP ON TUESDAY

REACTIONS (24)
  - Cerebrovascular accident [Unknown]
  - Blindness transient [Recovered/Resolved]
  - Retching [Recovered/Resolved]
  - Headache [Recovered/Resolved]
  - Taste disorder [Not Recovered/Not Resolved]
  - Dry throat [Recovered/Resolved]
  - Dysphagia [Recovered/Resolved]
  - Abdominal pain upper [Recovered/Resolved]
  - Dysgeusia [Not Recovered/Not Resolved]
  - Hepatic pain [Recovered/Resolved]
  - Abdominal pain [Recovered/Resolved]
  - Asthenopia [Recovered/Resolved]
  - Joint effusion [Not Recovered/Not Resolved]
  - Eye irritation [Unknown]
  - Eye pain [Recovered/Resolved]
  - Abnormal sensation in eye [Recovered/Resolved]
  - Vision blurred [Recovered/Resolved]
  - Eye discharge [Not Recovered/Not Resolved]
  - Dry eye [Unknown]
  - Ocular hyperaemia [Unknown]
  - Product odour abnormal [Unknown]
  - Product quality issue [Unknown]
  - Product packaging issue [Unknown]
  - Product colour issue [Unknown]

NARRATIVE: CASE EVENT DATE: 20190101
